FAERS Safety Report 7594745-2 (Version None)
Quarter: 2011Q3

REPORT INFORMATION
  Report Type: 
  Country: None (occurrence: None)
  Receive Date: 20110707
  Receipt Date: 20110630
  Transmission Date: 20111222
  Serious: Yes (Hospitalization)
  Sender: FDA-Public Use
  Company Number: US-B.I. PHARMACEUTICALS,INC./RIDGEFIELD-2011-BP-16731BP

PATIENT
  Age: 64 Year
  Sex: Male

DRUGS (8)
  1. ADVAIR DISKUS 100/50 [Concomitant]
  2. FLOMAX [Concomitant]
     Indication: PROSTATOMEGALY
  3. GLIMIPIRIDE [Concomitant]
     Indication: DIABETES MELLITUS
  4. SPIRIVA [Concomitant]
     Indication: CHRONIC OBSTRUCTIVE PULMONARY DISEASE
  5. LISINOPRIL [Concomitant]
     Indication: BLOOD PRESSURE INCREASED
  6. COMBIVENT [Suspect]
     Indication: CHRONIC OBSTRUCTIVE PULMONARY DISEASE
     Route: 055
     Dates: start: 20010101
  7. OXYGEN [Concomitant]
     Indication: CHRONIC OBSTRUCTIVE PULMONARY DISEASE
  8. PROAIR HFA [Concomitant]

REACTIONS (5)
  - DRUG INEFFECTIVE [None]
  - CHRONIC OBSTRUCTIVE PULMONARY DISEASE [None]
  - RESPIRATORY TRACT IRRITATION [None]
  - PNEUMONIA [None]
  - DIABETES MELLITUS [None]
